FAERS Safety Report 8223837-X (Version None)
Quarter: 2012Q1

REPORT INFORMATION
  Report Type: 
  Country: None (occurrence: None)
  Receive Date: 20120321
  Receipt Date: 20120316
  Transmission Date: 20120608
  Serious: Yes (Hospitalization)
  Sender: FDA-Public Use
  Company Number: JP-SP-2012-02456

PATIENT
  Age: 54 Year
  Sex: Female
  Weight: 45 kg

DRUGS (6)
  1. ADONA [Concomitant]
     Route: 048
     Dates: start: 20120125, end: 20120207
  2. DIVIGEL [Concomitant]
     Route: 062
  3. IMMUCYST [Suspect]
     Indication: BLADDER TRANSITIONAL CELL CARCINOMA STAGE I
     Route: 043
     Dates: start: 20120110, end: 20120221
  4. CEFACLOR [Concomitant]
     Indication: CYSTITIS
     Route: 048
     Dates: start: 20120125, end: 20120207
  5. LIPITOR [Concomitant]
     Indication: HYPERLIPIDAEMIA
     Route: 048
  6. ISONIAZID [Concomitant]
     Route: 048
     Dates: start: 20120229, end: 20120301

REACTIONS (10)
  - MUSCULOSKELETAL PAIN [None]
  - ARTHRITIS [None]
  - BACK PAIN [None]
  - PAIN IN EXTREMITY [None]
  - CONJUNCTIVITIS [None]
  - MALAISE [None]
  - ARTHRALGIA [None]
  - REITER'S SYNDROME [None]
  - HAEMATURIA [None]
  - MYALGIA [None]
